FAERS Safety Report 7654812-1 (Version None)
Quarter: 2011Q3

REPORT INFORMATION
  Report Type: 
  Country: None (occurrence: None)
  Receive Date: 20110729
  Receipt Date: 20110719
  Transmission Date: 20111222
  Serious: Yes (Other)
  Sender: FDA-Public Use
  Company Number: 2011SP033851

PATIENT
  Age: 22 Year
  Sex: Female
  Weight: 68.0396 kg

DRUGS (2)
  1. ZOLOFT [Concomitant]
  2. IMPLANON [Suspect]
     Indication: CONTRACEPTION
     Dates: start: 20110520

REACTIONS (6)
  - LOSS OF CONSCIOUSNESS [None]
  - PAIN IN EXTREMITY [None]
  - LETHARGY [None]
  - HAEMORRHAGE [None]
  - FATIGUE [None]
  - CONTUSION [None]
